FAERS Safety Report 14160200 (Version 1)
Quarter: 2017Q4

REPORT INFORMATION
  Report Type: Report from Study
  Country: US (occurrence: US)
  Receive Date: 20171106
  Receipt Date: 20171106
  Transmission Date: 20180321
  Serious: Yes (Other)
  Sender: FDA-Public Use
  Company Number: US-TEVA-817414USA

PATIENT
  Age: 62 Year
  Sex: Female

DRUGS (1)
  1. AUSTEDO [Suspect]
     Active Substance: DEUTETRABENAZINE
     Indication: TARDIVE DYSKINESIA
     Dosage: 12 MILLIGRAM DAILY;
     Route: 065
     Dates: start: 20171015

REACTIONS (11)
  - Confusional state [Unknown]
  - Attention deficit/hyperactivity disorder [Unknown]
  - Eating disorder [Unknown]
  - Agitation [Unknown]
  - Disorientation [Unknown]
  - Adverse event [Unknown]
  - Stress [Unknown]
  - Dyspnoea [Unknown]
  - Dysphagia [Unknown]
  - Obsessive-compulsive disorder [Unknown]
  - Cough [Unknown]

NARRATIVE: CASE EVENT DATE: 20171015
